FAERS Safety Report 20056137 (Version 1)
Quarter: 2021Q4

REPORT INFORMATION
  Report Type: Spontaneous
  Country: US (occurrence: None)
  Receive Date: 20211111
  Receipt Date: 20211111
  Transmission Date: 20220303
  Serious: No
  Sender: FDA-Public Use
  Company Number: US-ROCHE-2850218

PATIENT
  Sex: Female
  Weight: 59.474 kg

DRUGS (4)
  1. PULMOZYME [Suspect]
     Active Substance: DORNASE ALFA
     Indication: Chronic respiratory disease
     Dosage: VIAL
     Route: 055
  2. PULMOZYME [Suspect]
     Active Substance: DORNASE ALFA
     Indication: Tracheostomy
  3. PULMOZYME [Suspect]
     Active Substance: DORNASE ALFA
     Indication: Congenital multiplex arthrogryposis
  4. PULMOZYME [Suspect]
     Active Substance: DORNASE ALFA
     Indication: Muscular dystrophy

REACTIONS (3)
  - Product storage error [Unknown]
  - Off label use [Unknown]
  - No adverse event [Unknown]
